FAERS Safety Report 5199441-7 (Version None)
Quarter: 2006Q4

REPORT INFORMATION
  Report Type: 
  Country: None (occurrence: None)
  Receive Date: 20061229
  Receipt Date: 20061218
  Transmission Date: 20070319
  Serious: No
  Sender: FDA-Public Use
  Company Number: TPA2006A01538

PATIENT
  Age: 63 Year
  Sex: Female
  Weight: 104.3273 kg

DRUGS (11)
  1. ROZEREM [Suspect]
     Indication: INSOMNIA
     Dosage: SEE IMAGE
     Route: 048
     Dates: start: 20060906, end: 20060907
  2. ROZEREM [Suspect]
     Indication: INSOMNIA
     Dosage: SEE IMAGE
     Route: 048
     Dates: start: 20060915, end: 20060916
  3. XANAX [Concomitant]
  4. CELEBREX [Concomitant]
  5. LIPITOR [Concomitant]
  6. SYNTHROID [Concomitant]
  7. PREMARIN [Concomitant]
  8. TRICOR [Concomitant]
  9. LISINOPRIL/HCT (HYDROCHLOROTHIAZIDE, LISINOPRIL) [Concomitant]
  10. BUSPAR [Concomitant]
  11. PROZAC [Concomitant]

REACTIONS (6)
  - CONDITION AGGRAVATED [None]
  - DRUG INEFFECTIVE [None]
  - FEELING ABNORMAL [None]
  - HYPERSOMNIA [None]
  - INSOMNIA [None]
  - SOMNOLENCE [None]
